FAERS Safety Report 9422183 (Version 1)
Quarter: 2013Q3

REPORT INFORMATION
  Report Type: Report from Study
  Country: IN (occurrence: IN)
  Receive Date: 20130726
  Receipt Date: 20130726
  Transmission Date: 20140515
  Serious: Yes (Death, Hospitalization)
  Sender: FDA-Public Use
  Company Number: PHHY2013IN079199

PATIENT
  Age: 55 Year
  Sex: Female
  Weight: 42 kg

DRUGS (1)
  1. ASUNRA [Suspect]
     Indication: IRON OVERLOAD
     Dosage: 400 MG, QD
     Route: 048
     Dates: start: 20120611, end: 20130627

REACTIONS (4)
  - Death [Fatal]
  - Pain [Unknown]
  - Syncope [Unknown]
  - Dyspnoea [Unknown]
